FAERS Safety Report 4852340-X (Version None)
Quarter: 2005Q4

REPORT INFORMATION
  Report Type: 
  Country: None (occurrence: None)
  Receive Date: 20051123
  Receipt Date: 20050503
  Transmission Date: 20060501
  Serious: Yes (Other)
  Sender: FDA-Public Use
  Company Number: US-JNJFOC-20050302179

PATIENT
  Age: 64 Year
  Sex: Female
  Weight: 95.2554 kg

DRUGS (14)
  1. LEVAQUIN [Suspect]
     Indication: PNEUMONIA
     Dosage: 750 MG, 1 IN 1 DAY, INTRAVENOUS
     Route: 042
     Dates: start: 20050301, end: 20050301
  2. LEVAQUIN [Suspect]
     Indication: PNEUMONIA
     Dosage: 750 MG, 1 IN 1 DAY, ORAL
     Route: 048
     Dates: start: 20050302, end: 20050302
  3. ZITHROMAX [Concomitant]
  4. LOVENOX [Concomitant]
  5. FLOVENT [Concomitant]
  6. NASACORT [Concomitant]
  7. ASTELIN [Concomitant]
  8. PREMARIN [Concomitant]
  9. NORVASC [Concomitant]
  10. SOLU-MEDROL [Concomitant]
  11. LASIX [Concomitant]
  12. PEPCID (FAMITIDINE) [Concomitant]
  13. THEOPHYLLINE [Concomitant]
  14. ATIVAN [Concomitant]

REACTIONS (1)
  - RHABDOMYOLYSIS [None]
